FAERS Safety Report 14551140 (Version 1)
Quarter: 2018Q1

REPORT INFORMATION
  Report Type: Spontaneous
  Country: PL (occurrence: PL)
  Receive Date: 20180220
  Receipt Date: 20180220
  Transmission Date: 20180509
  Serious: Yes (Other)
  Sender: FDA-Public Use
  Company Number: PL-ROCHE-2045217

PATIENT
  Age: 52 Year
  Sex: Male

DRUGS (17)
  1. BISOCARD [Concomitant]
     Active Substance: BISOPROLOL
     Route: 065
  2. IPOREL [Concomitant]
     Active Substance: CLONIDINE
     Route: 065
  3. VITAMIN D3 [Concomitant]
     Active Substance: CHOLECALCIFEROL
     Route: 065
  4. EPIVIR [Concomitant]
     Active Substance: LAMIVUDINE
     Route: 065
  5. AMLOPIN [Concomitant]
     Active Substance: AMLODIPINE BESYLATE
     Route: 065
  6. MAGNEZ [Concomitant]
     Route: 065
  7. CELLCEPT [Concomitant]
     Active Substance: MYCOPHENOLATE MOFETIL\MYCOPHENOLATE MOFETIL HYDROCHLORIDE
     Route: 065
  8. FUROSEMIDUM [Concomitant]
     Active Substance: FUROSEMIDE
     Route: 065
  9. PROGRAF [Concomitant]
     Active Substance: TACROLIMUS\TACROLIMUS ANHYDROUS
     Route: 065
  10. ENCORTON [Concomitant]
     Active Substance: PREDNISONE
     Route: 065
  11. ZIAGEN [Concomitant]
     Active Substance: ABACAVIR SULFATE
     Route: 065
  12. SOVALDI [Interacting]
     Active Substance: SOFOSBUVIR
     Indication: HEPATITIS C VIRUS TEST POSITIVE
     Route: 065
  13. TIVICAY [Concomitant]
     Active Substance: DOLUTEGRAVIR SODIUM
     Route: 065
  14. RIBAVIRIN. [Suspect]
     Active Substance: RIBAVIRIN
     Indication: PRODUCT USED FOR UNKNOWN INDICATION
     Route: 065
  15. ALLOPURINOL. [Concomitant]
     Active Substance: ALLOPURINOL
     Route: 065
  16. RIBAVIRIN. [Interacting]
     Active Substance: RIBAVIRIN
     Indication: HEPATITIS C VIRUS TEST POSITIVE
     Route: 065
  17. DOXAR (POLAND) [Concomitant]
     Route: 065

REACTIONS (5)
  - Asthenia [Unknown]
  - Haemoglobin decreased [Unknown]
  - Drug interaction [Unknown]
  - Exercise tolerance decreased [Unknown]
  - Drug level decreased [Unknown]
